FAERS Safety Report 9621236 (Version 1)
Quarter: 2013Q4

REPORT INFORMATION
  Report Type: Spontaneous
  Country: GB (occurrence: None)
  Receive Date: 20131011
  Receipt Date: 20131011
  Transmission Date: 20140711
  Serious: Yes (Disabling, Other)
  Sender: FDA-Public Use
  Company Number: None

PATIENT
  Age: 65 Year
  Sex: Female
  Weight: 54.43 kg

DRUGS (14)
  1. TOBI [Suspect]
     Indication: PULMONARY SARCOIDOSIS
     Dosage: 1 NEBULE, TWICE DAILY, NEBULISED
     Dates: start: 20130515, end: 20130723
  2. ALENDRONIC ACID [Concomitant]
  3. ATORVASTATIN [Concomitant]
  4. AZITHROMYCIN [Concomitant]
  5. CETIRIZINE HYDROCHLORIDE [Concomitant]
  6. DILTIAZEM (TILDIEM LA) [Concomitant]
  7. EZETIMIBE [Concomitant]
  8. FULTIUM COLECALCIFEROL [Concomitant]
  9. PREDNISOLONE [Concomitant]
  10. SALBUTAMOL [Concomitant]
  11. SODIUM CHLORIDE [Concomitant]
  12. PARACETAMOL [Concomitant]
  13. OXYGEN [Concomitant]
  14. TOBI [Suspect]
     Indication: LUNG INFECTION PSEUDOMONAL
     Dosage: 1 NEBULE, TWICE DAILY, NEBULISED
     Dates: start: 20130515, end: 20130723

REACTIONS (8)
  - Dyspnoea [None]
  - Fatigue [None]
  - Chest pain [None]
  - Weight decreased [None]
  - Aphonia [None]
  - Back pain [None]
  - Myalgia [None]
  - Malaise [None]
